FAERS Safety Report 6426189-0 (Version None)
Quarter: 2009Q4

REPORT INFORMATION
  Report Type: 
  Country: None (occurrence: None)
  Receive Date: 20091104
  Receipt Date: 20091023
  Transmission Date: 20100525
  Serious: No
  Sender: FDA-Public Use
  Company Number: US-JNJFOC-20091008215

PATIENT
  Sex: Female

DRUGS (2)
  1. DURAGESIC-100 [Suspect]
     Indication: PAIN
     Dosage: NDC NUMBER 50458-0035-05
     Route: 062
  2. LORTAB [Suspect]
     Indication: PAIN
     Route: 048

REACTIONS (5)
  - PAIN [None]
  - PRODUCT QUALITY ISSUE [None]
  - VOMITING [None]
  - WITHDRAWAL SYNDROME [None]
  - WRONG TECHNIQUE IN DRUG USAGE PROCESS [None]
